FAERS Safety Report 5395335-2 (Version None)
Quarter: 2007Q3

REPORT INFORMATION
  Report Type: 
  Country: None (occurrence: None)
  Receive Date: 20070718
  Receipt Date: 20070503
  Transmission Date: 20080115
  Serious: Yes (Hospitalization, Other)
  Sender: FDA-Public Use
  Company Number: 2006129567

PATIENT
  Sex: Male
  Weight: 82.6 kg

DRUGS (1)
  1. CELEBREX [Suspect]

REACTIONS (1)
  - CEREBROVASCULAR ACCIDENT [None]
